FAERS Safety Report 5162838-5 (Version None)
Quarter: 2006Q4

REPORT INFORMATION
  Report Type: 
  Country: None (occurrence: None)
  Receive Date: 20061201
  Receipt Date: 20010226
  Transmission Date: 20070319
  Serious: Yes (Hospitalization)
  Sender: FDA-Public Use
  Company Number: FR-GLAXOSMITHKLINE-B0100019A

PATIENT
  Sex: Male
  Weight: 3.1 kg

DRUGS (3)
  1. ZIDOVUDINE [Suspect]
     Indication: HUMAN IMMUNODEFICIENCY VIRUS TRANSMISSION
     Route: 042
     Dates: start: 19990122, end: 19990123
  2. ZIDOVUDINE [Suspect]
     Route: 048
     Dates: start: 19990124
  3. RETROVIR [Suspect]
     Indication: HUMAN IMMUNODEFICIENCY VIRUS TRANSMISSION
     Route: 065

REACTIONS (7)
  - ABDOMINAL DISTENSION [None]
  - ANAEMIA [None]
  - BILIARY TRACT DISORDER [None]
  - CYANOSIS [None]
  - FLATULENCE [None]
  - FOOD AVERSION [None]
  - HYPOTONIA [None]
